FAERS Safety Report 5792617-7 (Version None)
Quarter: 2008Q2

REPORT INFORMATION
  Report Type: 
  Country: None (occurrence: None)
  Receive Date: 20080626
  Receipt Date: 20080614
  Transmission Date: 20081010
  Serious: Yes (Other)
  Sender: FDA-Public Use
  Company Number: US-PFIZER INC-2008050439

PATIENT
  Sex: Female
  Weight: 55.8 kg

DRUGS (15)
  1. CHANTIX [Suspect]
     Indication: SMOKING CESSATION THERAPY
     Dates: start: 20070101, end: 20080601
  2. DIFLUCAN [Suspect]
     Indication: FUNGAL INFECTION
     Dates: start: 20080101, end: 20080101
  3. LEXAPRO [Suspect]
     Indication: GENERALISED ANXIETY DISORDER
  4. DRUG, UNSPECIFIED [Suspect]
  5. VALIUM [Concomitant]
  6. COLACE [Concomitant]
  7. TYLENOL [Concomitant]
  8. AMBIEN [Concomitant]
  9. HYDROCODONE [Concomitant]
  10. BUPRENORPHINE HYDROCHLORIDE/NALOXONE HYDROCHLORIDE [Concomitant]
  11. ASACOL [Concomitant]
  12. MAXALT [Concomitant]
  13. LEVONORGESTREL AND ETHINYL ESTRADIOL [Concomitant]
  14. ACYCLOVIR SODIUM [Concomitant]
  15. COMPAZINE [Concomitant]

REACTIONS (8)
  - CROHN'S DISEASE [None]
  - DEPRESSION [None]
  - DRUG ADMINISTRATION ERROR [None]
  - FEELING ABNORMAL [None]
  - FUNGAL INFECTION [None]
  - SUICIDAL IDEATION [None]
  - URINARY TRACT INFECTION [None]
  - VOMITING [None]
